FAERS Safety Report 6307100-X (Version None)
Quarter: 2009Q3

REPORT INFORMATION
  Report Type: 
  Country: None (occurrence: None)
  Receive Date: 20090812
  Receipt Date: 20090805
  Transmission Date: 20100115
  Serious: Yes (Hospitalization)
  Sender: FDA-Public Use
  Company Number: FR-ABBOTT-08P-056-0483616-00

PATIENT
  Sex: Female

DRUGS (8)
  1. DEPAKENE [Suspect]
     Indication: DRUG USE FOR UNKNOWN INDICATION
     Route: 048
     Dates: start: 20080526, end: 20080814
  2. SEROPLEX FILM-COATED TABLETS [Suspect]
     Indication: ANXIETY
     Route: 048
     Dates: start: 20080526, end: 20080827
  3. MALOCIDE [Suspect]
     Indication: DRUG USE FOR UNKNOWN INDICATION
     Route: 048
     Dates: start: 20080301
  4. ADIAZINE [Suspect]
     Indication: DRUG USE FOR UNKNOWN INDICATION
     Route: 048
     Dates: start: 20080301
  5. CLARITIN [Concomitant]
     Indication: DRUG USE FOR UNKNOWN INDICATION
     Route: 048
  6. TERCIAN [Concomitant]
     Indication: DRUG USE FOR UNKNOWN INDICATION
     Route: 048
  7. MALOCIDE [Concomitant]
     Indication: TOXOPLASMA SEROLOGY POSITIVE
     Route: 048
     Dates: start: 20080301
  8. SULFADIAZINE [Concomitant]
     Indication: TOXOPLASMA SEROLOGY POSITIVE
     Route: 048
     Dates: start: 20080301

REACTIONS (3)
  - CHOLESTASIS [None]
  - CYTOLYTIC HEPATITIS [None]
  - GAMMA-GLUTAMYLTRANSFERASE INCREASED [None]
